FAERS Safety Report 4608295-6 (Version None)
Quarter: 2005Q1

REPORT INFORMATION
  Report Type: 
  Country: None (occurrence: None)
  Receive Date: 20050303
  Receipt Date: 20041214
  Transmission Date: 20050727
  Serious: No
  Sender: FDA-Public Use
  Company Number: 2004BI001803

PATIENT
  Sex: Female

DRUGS (1)
  1. AMEVIVE [Suspect]
     Dosage: 15 MG;QW;IM
     Route: 030
     Dates: start: 20041101, end: 20041214

REACTIONS (2)
  - PSORIASIS [None]
  - VAGINAL MYCOSIS [None]
